FAERS Safety Report 19160164 (Version 2)
Quarter: 2021Q4

REPORT INFORMATION
  Report Type: Spontaneous
  Country: EG (occurrence: EG)
  Receive Date: 20210420
  Receipt Date: 20211216
  Transmission Date: 20220303
  Serious: Yes (Death)
  Sender: FDA-Public Use
  Company Number: EG-PFIZER INC-2021428306

PATIENT
  Age: 59 Year
  Sex: Male

DRUGS (1)
  1. SUTENT [Suspect]
     Active Substance: SUNITINIB MALATE
     Indication: Metastatic renal cell carcinoma
     Dosage: 50 MG, 1X/DAY ON SCHEDULE (4/2)
     Route: 048
     Dates: start: 20210318, end: 20210413

REACTIONS (1)
  - Death [Fatal]

NARRATIVE: CASE EVENT DATE: 20210413
